FAERS Safety Report 12801437 (Version 1)
Quarter: 2016Q4

REPORT INFORMATION
  Report Type: Spontaneous
  Country: US (occurrence: US)
  Receive Date: 20161003
  Receipt Date: 20161003
  Transmission Date: 20170207
  Serious: Yes (Hospitalization, Congenital Anomaly, Other)
  Sender: FDA-Public Use
  Company Number: US-ALEMBIC PHARMACUETICALS LIMITED-2016SCAL000766

PATIENT

DRUGS (2)
  1. OLMESARTAN AGH [Suspect]
     Active Substance: OLMESARTAN
     Indication: PRODUCT USED FOR UNKNOWN INDICATION
     Dosage: UNK
     Route: 064
  2. VALSARTAN. [Suspect]
     Active Substance: VALSARTAN
     Indication: PRODUCT USED FOR UNKNOWN INDICATION
     Dosage: UNK
     Route: 064

REACTIONS (16)
  - Patent ductus arteriosus [Unknown]
  - Hypocalvaria [Unknown]
  - Maternal drugs affecting foetus [None]
  - Microcephaly [Unknown]
  - Cerebral palsy [Unknown]
  - Pulmonary hypoplasia [Unknown]
  - Chronic kidney disease [Unknown]
  - Arachnoid cyst [Unknown]
  - Foetal exposure during pregnancy [Unknown]
  - Oligohydramnios [Unknown]
  - Deafness neurosensory [Unknown]
  - Atrial septal defect [Unknown]
  - Convulsion neonatal [Unknown]
  - Encephalomalacia [Unknown]
  - Acute kidney injury [Unknown]
  - Haemorrhage intracranial [Unknown]
